FAERS Safety Report 4488130-X (Version None)
Quarter: 2004Q4

REPORT INFORMATION
  Report Type: 
  Country: None (occurrence: None)
  Receive Date: 20041022
  Receipt Date: 20041018
  Transmission Date: 20050328
  Serious: Yes (Death, Hospitalization)
  Sender: FDA-Public Use
  Company Number: DEWYE120919OCT04

PATIENT
  Age: 38 Year
  Sex: Male

DRUGS (3)
  1. RAPAMUNE [Suspect]
     Indication: PROPHYLAXIS AGAINST TRANSPLANT REJECTION
     Dosage: ACCORDING DRUG LEVEL ORAL
     Route: 048
     Dates: start: 20040601
  2. CELLCEPT [Concomitant]
  3. PREDNISONE [Concomitant]

REACTIONS (7)
  - ARRHYTHMIA [None]
  - BRONCHITIS [None]
  - CARDIOMEGALY [None]
  - ELECTROCARDIOGRAM T WAVE INVERSION [None]
  - FALSE POSITIVE LABORATORY RESULT [None]
  - HEART TRANSPLANT REJECTION [None]
  - HUMAN HERPESVIRUS 6 INFECTION [None]
